FAERS Safety Report 25517639 (Version 2)
Quarter: 2025Q3

REPORT INFORMATION
  Report Type: Spontaneous
  Country: US (occurrence: US)
  Receive Date: 20250704
  Receipt Date: 20250906
  Transmission Date: 20251020
  Serious: Yes (Hospitalization)
  Sender: ALEXION PHARMACEUTICALS
  Company Number: US-AstraZeneca-CH-00899527A

PATIENT
  Weight: 84.8 kg

DRUGS (1)
  1. FARXIGA [Suspect]
     Active Substance: DAPAGLIFLOZIN PROPANEDIOL
     Dosage: 10 MILLIGRAM, QD
     Dates: start: 20241210

REACTIONS (2)
  - Complications of transplanted heart [Not Recovered/Not Resolved]
  - Cardiac failure [Not Recovered/Not Resolved]
